FAERS Safety Report 9372365 (Version 1)
Quarter: 2013Q2

REPORT INFORMATION
  Report Type: Spontaneous
  Country: SE (occurrence: SE)
  Receive Date: 20130627
  Receipt Date: 20130627
  Transmission Date: 20140414
  Serious: Yes (Other)
  Sender: FDA-Public Use
  Company Number: SE-009507513-1306SWE008866

PATIENT
  Sex: Male

DRUGS (1)
  1. PROSCAR [Suspect]
     Indication: ALOPECIA
     Dosage: 1/4 TABLET DAILY
     Route: 048
     Dates: start: 201211, end: 2012

REACTIONS (7)
  - Abdominal discomfort [Recovered/Resolved]
  - Anxiety [Recovered/Resolved]
  - Insomnia [Recovered/Resolved]
  - Dizziness [Recovered/Resolved]
  - Hallucination [Recovered/Resolved]
  - Libido increased [Recovered/Resolved]
  - Palpitations [Recovered/Resolved]
